FAERS Safety Report 22532359 (Version 2)
Quarter: 2023Q2

REPORT INFORMATION
  Report Type: Spontaneous
  Country: FR (occurrence: FR)
  Receive Date: 20230607
  Receipt Date: 20230613
  Transmission Date: 20230722
  Serious: Yes (Other)
  Sender: FDA-Public Use
  Company Number: None

PATIENT
  Age: 35 Year
  Sex: Female

DRUGS (18)
  1. KEYTRUDA [Suspect]
     Active Substance: PEMBROLIZUMAB
     Indication: Triple negative breast cancer
     Dosage: 200 MILLIGRAM, ONCE
     Route: 042
     Dates: start: 20230130, end: 20230130
  2. KEYTRUDA [Suspect]
     Active Substance: PEMBROLIZUMAB
     Dosage: 200 MILLIGRAM, ONCE
     Route: 042
     Dates: start: 20230221, end: 20230221
  3. KEYTRUDA [Suspect]
     Active Substance: PEMBROLIZUMAB
     Dosage: 200 MILLIGRAM, ONCE
     Route: 042
     Dates: start: 20230314, end: 20230314
  4. CARBOPLATIN [Suspect]
     Active Substance: CARBOPLATIN
     Indication: Triple negative breast cancer
     Dosage: 189 MILLIGRAM, ONCE
     Route: 042
     Dates: start: 20230130, end: 20230130
  5. CARBOPLATIN [Suspect]
     Active Substance: CARBOPLATIN
     Dosage: 212.5 MILLIGRAM, ONCE
     Route: 042
     Dates: start: 20230214, end: 20230214
  6. CARBOPLATIN [Suspect]
     Active Substance: CARBOPLATIN
     Dosage: 196.5 MILLIGRAM, ONCE
     Route: 042
     Dates: start: 20230228, end: 20230228
  7. CARBOPLATIN [Suspect]
     Active Substance: CARBOPLATIN
     Dosage: 212 MILLIGRAM, ONCE
     Route: 042
     Dates: start: 20230221, end: 20230221
  8. CARBOPLATIN [Suspect]
     Active Substance: CARBOPLATIN
     Dosage: 205 MILLIGRAM, ONCE
     Route: 042
     Dates: start: 20230314, end: 20230314
  9. CARBOPLATIN [Suspect]
     Active Substance: CARBOPLATIN
     Dosage: 189 MILLIGRAM, ONCE
     Route: 042
     Dates: start: 20230207, end: 20230207
  10. CARBOPLATIN [Suspect]
     Active Substance: CARBOPLATIN
     Dosage: 196.5 MILLIGRAM, ONCE
     Route: 042
     Dates: start: 20230307, end: 20230307
  11. CARBOPLATIN [Suspect]
     Active Substance: CARBOPLATIN
     Dosage: 198 UNK
     Dates: start: 20230207, end: 20230207
  12. PACLITAXEL [Suspect]
     Active Substance: PACLITAXEL
     Indication: Triple negative breast cancer
     Dosage: 134.5 MILLIGRAM, ONCE
     Route: 042
     Dates: start: 20230130, end: 20230130
  13. PACLITAXEL [Suspect]
     Active Substance: PACLITAXEL
     Dosage: 133 MILLIGRAM, ONCE
     Route: 042
     Dates: start: 20230314, end: 20230314
  14. PACLITAXEL [Suspect]
     Active Substance: PACLITAXEL
     Dosage: 133 MILLIGRAM, ONCE
     Route: 042
     Dates: start: 20230228, end: 20230228
  15. PACLITAXEL [Suspect]
     Active Substance: PACLITAXEL
     Dosage: 134.5 MILLIGRAM, ONCE
     Route: 042
     Dates: start: 20230214, end: 20230214
  16. PACLITAXEL [Suspect]
     Active Substance: PACLITAXEL
     Dosage: 133 MILLIGRAM, ONCE
     Route: 042
     Dates: start: 20230307, end: 20230307
  17. PACLITAXEL [Suspect]
     Active Substance: PACLITAXEL
     Dosage: 133 MILLIGRAM, ONCE
     Route: 042
     Dates: start: 20230221, end: 20230221
  18. PACLITAXEL [Suspect]
     Active Substance: PACLITAXEL
     Dosage: 134.5 MILLIGRAM, ONCE
     Route: 042
     Dates: start: 20230207, end: 20230207

REACTIONS (1)
  - Haemorrhage [Recovered/Resolved]

NARRATIVE: CASE EVENT DATE: 20230303
